FAERS Safety Report 11923374 (Version 1)
Quarter: 2016Q1

REPORT INFORMATION
  Report Type: Spontaneous
  Country: US (occurrence: US)
  Receive Date: 20160118
  Receipt Date: 20160118
  Transmission Date: 20160526
  Serious: No
  Sender: FDA-Public Use
  Company Number: US-009507513-1601USA001486

PATIENT
  Sex: Female

DRUGS (1)
  1. NEXPLANON [Suspect]
     Active Substance: ETONOGESTREL
     Indication: CONTRACEPTION
     Dosage: FREQUENCY:  ONE ROD PER 3 YEAR
     Route: 059
     Dates: end: 20160105

REACTIONS (3)
  - No adverse event [Unknown]
  - Product quality issue [Unknown]
  - Device breakage [Recovered/Resolved]
